FAERS Safety Report 5626877-X (Version None)
Quarter: 2008Q1

REPORT INFORMATION
  Report Type: 
  Country: None (occurrence: None)
  Receive Date: 20080214
  Receipt Date: 20080212
  Transmission Date: 20080703
  Serious: Yes (Hospitalization, Other)
  Sender: FDA-Public Use
  Company Number: AU-MERCK-0802AUS00093

PATIENT
  Age: 83 Year
  Sex: Female

DRUGS (6)
  1. FOSAMAX [Suspect]
     Indication: OSTEOPOROSIS
     Route: 048
  2. ISOSORBIDE MONONITRATE [Concomitant]
     Indication: CORONARY ARTERY DISEASE
     Route: 065
  3. FOSINOPRIL SODIUM [Concomitant]
     Indication: CORONARY ARTERY DISEASE
     Route: 065
  4. CLOPIDOGREL BISULFATE [Concomitant]
     Indication: STENT PLACEMENT
     Route: 065
  5. ASPIRIN [Concomitant]
     Indication: STENT PLACEMENT
     Route: 048
  6. FUROSEMIDE [Concomitant]
     Indication: CORONARY ARTERY DISEASE
     Route: 065

REACTIONS (4)
  - CARDIAC DISORDER [None]
  - DYSPHAGIA [None]
  - IMPAIRED HEALING [None]
  - WRIST FRACTURE [None]
